FAERS Safety Report 13468017 (Version 2)
Quarter: 2017Q2

REPORT INFORMATION
  Report Type: Spontaneous
  Country: BR (occurrence: BR)
  Receive Date: 20170421
  Receipt Date: 20170501
  Transmission Date: 20170830
  Serious: Yes (Life-Threatening)
  Sender: FDA-Public Use
  Company Number: BR-GUERBET-BR-20170155

PATIENT
  Age: 36 Year
  Sex: Male

DRUGS (1)
  1. OPTIJECT 350 [Suspect]
     Active Substance: IOVERSOL
     Indication: COMPUTERISED TOMOGRAM
     Route: 042
     Dates: start: 20170316, end: 20170316

REACTIONS (2)
  - Pruritus [Recovered/Resolved]
  - Hyperaemia [Recovered/Resolved]

NARRATIVE: CASE EVENT DATE: 20170316
